FAERS Safety Report 7486120-6 (Version None)
Quarter: 2011Q2

REPORT INFORMATION
  Report Type: 
  Country: None (occurrence: None)
  Receive Date: 20110517
  Receipt Date: 20110506
  Transmission Date: 20111010
  Serious: Yes (Other)
  Sender: FDA-Public Use
  Company Number: US-BAXTER-2011BH008584

PATIENT
  Age: 58 Year
  Sex: Female

DRUGS (1)
  1. DIANEAL [Suspect]
     Indication: PERITONEAL DIALYSIS
     Route: 033
     Dates: start: 20090920

REACTIONS (6)
  - SICKLE CELL ANAEMIA WITH CRISIS [None]
  - CHEST PAIN [None]
  - MALAISE [None]
  - MUSCULOSKELETAL PAIN [None]
  - DECREASED APPETITE [None]
  - BACK PAIN [None]
